FAERS Safety Report 11151007 (Version 1)
Quarter: 2015Q2

REPORT INFORMATION
  Report Type: Spontaneous
  Country: US (occurrence: None)
  Receive Date: 20150528
  Receipt Date: 20150528
  Transmission Date: 20150821
  Serious: Yes (Hospitalization)
  Sender: FDA-Public Use
  Company Number: COM-003217

PATIENT
  Age: 14 Year
  Sex: Female

DRUGS (1)
  1. DIPHENHYDRAMINE 50 MG/ML [Suspect]
     Active Substance: DIPHENHYDRAMINE
     Dosage: 3 SOFTGELS, TWICE
     Route: 048
     Dates: start: 20150518, end: 20150519

REACTIONS (2)
  - Somnolence [None]
  - Incorrect dose administered [None]

NARRATIVE: CASE EVENT DATE: 20150519
